FAERS Safety Report 10055917 (Version 6)
Quarter: 2014Q3

REPORT INFORMATION
  Report Type: Spontaneous
  Country: AT (occurrence: None)
  Receive Date: 20140401
  Receipt Date: 20140703
  Transmission Date: 20150326
  Serious: Yes (Death, Hospitalization, Disabling, Other)
  Sender: FDA-Public Use
  Company Number: 2014AT003103

PATIENT
  Age: 53 Year
  Sex: Male
  Weight: 108 kg

DRUGS (21)
  1. LIDAPRIM FORTE (SULFAMETROLE, TRIMETHOPRIM) [Concomitant]
  2. URBASON (METHYLPREDNISOLONE) [Concomitant]
  3. KALIORAL (POTASSIUM CANRENOATE) [Concomitant]
  4. FOLSAN (FOLIC ACID) [Concomitant]
  5. PANTOLOC (PANTOPRAZOLE SODIUM SESQUIHYDRATE) [Concomitant]
  6. PREDNISONE (PREDNISONE) [Concomitant]
     Active Substance: PREDNISONE
  7. DIOVAN FORTE (VALSARTAN) [Concomitant]
  8. NERISONA ULTRAPHIL (DIFLUCORTOLONE VALERATE) CREAM [Concomitant]
  9. INSULIN (INSULIN HUMAN) [Concomitant]
  10. SEROPRAM (CITALOPRAM HYDROBROMIDE) [Concomitant]
  11. DEANXIT (FLUPENTIXOL DIHYDROCHLORIDE, MELITRACEN HYDROCHLORIDE) [Concomitant]
  12. CORTOCOSTEROIDS [Suspect]
     Active Substance: UNSPECIFIED INGREDIENT
     Indication: GRAFT VERSUS HOST DISEASE
     Dates: start: 201212, end: 201301
  13. NOVOMIX (INSULIN ASPART, INSULIN ASPART PROTAMINE (CRYSTALLINE)) [Concomitant]
  14. FAMVIR (FAMICICLOVIR) [Concomitant]
  15. VFEND [Concomitant]
     Active Substance: VORICONAZOLE
  16. ICLUSIG [Suspect]
     Active Substance: PONATINIB
     Indication: CHRONIC MYELOID LEUKAEMIA
     Route: 048
     Dates: start: 20130816, end: 20130820
  17. UROSIN (ALLOPURINOL) [Concomitant]
     Active Substance: ALLOPURINOL
  18. PRAVASTATIN [Concomitant]
     Active Substance: PRAVASTATIN\PRAVASTATIN SODIUM
  19. AERIUS [Concomitant]
     Active Substance: DESLORATADINE
  20. ICLUSIG [Suspect]
     Active Substance: PONATINIB
     Route: 048
     Dates: start: 20130816, end: 20130820
  21. GLANDOMED (CHLORHEXIDINE GLUCONATE, MACROGOL, SACCHARIN SODIUM, SODIUM BICARBONATE, SODIUM EDETATE) MOUTHWASH [Concomitant]

REACTIONS (44)
  - Muscle contractions involuntary [None]
  - Escherichia urinary tract infection [None]
  - Metabolic encephalopathy [None]
  - Disturbance in attention [None]
  - Memory impairment [None]
  - Disorientation [None]
  - Atrial fibrillation [None]
  - Stem cell transplant [None]
  - Coordination abnormal [None]
  - Somnolence [None]
  - Aphasia [None]
  - Rhinitis [None]
  - Ear canal injury [None]
  - Toxicity to various agents [None]
  - Hypokalaemia [None]
  - Drug resistance [None]
  - Progressive multifocal leukoencephalopathy [None]
  - Dysarthria [None]
  - Muscular weakness [None]
  - Personality change [None]
  - Infection [None]
  - Tachycardia [None]
  - Diabetes mellitus [None]
  - Vascular calcification [None]
  - Abdominal pain [None]
  - Apraxia [None]
  - Ill-defined disorder [None]
  - Dizziness [None]
  - Surgical procedure repeated [None]
  - Vascular encephalopathy [None]
  - Confusional state [None]
  - Troponin increased [None]
  - Cognitive disorder [None]
  - Vomiting [None]
  - Otitis externa [None]
  - Headache [None]
  - Sepsis [None]
  - General physical health deterioration [None]
  - Performance status decreased [None]
  - Muscle spasms [None]
  - Tremor [None]
  - Amnesia [None]
  - Incontinence [None]
  - Hypotonia [None]

NARRATIVE: CASE EVENT DATE: 20131113
